FAERS Safety Report 5223608-2 (Version None)
Quarter: 2007Q1

REPORT INFORMATION
  Report Type: 
  Country: None (occurrence: None)
  Receive Date: 20070118
  Receipt Date: 20070112
  Transmission Date: 20070707
  Serious: Yes (Hospitalization)
  Sender: FDA-Public Use
  Company Number: 200711156

PATIENT
  Age: 70 Year
  Sex: Female

DRUGS (1)
  1. SANDOGLOBULIN [Suspect]
     Indication: GUILLAIN-BARRE SYNDROME
     Dosage: 400 MG/KG QD IV
     Route: 042
     Dates: start: 20070103, end: 20070103

REACTIONS (4)
  - BACK PAIN [None]
  - FEELING COLD [None]
  - LIVEDO RETICULARIS [None]
  - TACHYCARDIA [None]
